FAERS Safety Report 6664220-8 (Version None)
Quarter: 2010Q2

REPORT INFORMATION
  Report Type: 
  Country: None (occurrence: None)
  Receive Date: 20100401
  Receipt Date: 20100326
  Transmission Date: 20101027
  Serious: Yes (Death, Life-Threatening, Hospitalization)
  Sender: FDA-Public Use
  Company Number: CHNY2008DE00568

PATIENT
  Sex: Female

DRUGS (33)
  1. TAVEGIL (NCH) [Suspect]
     Indication: DERMATITIS
     Dosage: UNK
     Route: 048
     Dates: start: 20030403, end: 20030409
  2. TAVEGIL (NCH) [Suspect]
     Indication: RASH
  3. METOCLOPRAMIDE (NGX) [Suspect]
     Indication: NAUSEA
     Route: 048
     Dates: start: 20030409
  4. METOCLOPRAMIDE (NGX) [Suspect]
     Indication: VOMITING
  5. DIAZEPAM [Suspect]
     Indication: GRAND MAL CONVULSION
     Dates: start: 20030331, end: 20030409
  6. PANTOPRAZOLE SODIUM [Suspect]
     Indication: ABDOMINAL DISCOMFORT
     Dosage: 20 MG, QD
     Route: 048
     Dates: start: 20030314, end: 20030101
  7. TIMONIL [Suspect]
     Indication: GRAND MAL CONVULSION
     Dosage: 1 DF, BID
     Dates: start: 20030201, end: 20030416
  8. DIGITOXIN TAB [Suspect]
     Indication: SUPRAVENTRICULAR TACHYCARDIA
     Dosage: UNK, UNK
     Dates: start: 20030304, end: 20030101
  9. RIVOTRIL [Suspect]
     Indication: GRAND MAL CONVULSION
     Dates: start: 20030331, end: 20030409
  10. BRONCHORETARD [Suspect]
     Indication: ASTHMA
     Dosage: 1 DF, BID
     Dates: start: 20030314, end: 20030101
  11. BRONCHORETARD [Suspect]
     Indication: SUPRAVENTRICULAR TACHYCARDIA
  12. ISOPTIN [Suspect]
     Indication: SUPRAVENTRICULAR TACHYCARDIA
     Dosage: 1-0-1, 1-0-1/2
     Dates: start: 20030314, end: 20030331
  13. ISOPTIN [Suspect]
     Indication: TACHYCARDIA PAROXYSMAL
  14. PULMICORT [Suspect]
     Indication: CHRONIC OBSTRUCTIVE PULMONARY DISEASE
     Dosage: 2-0-2, 2-0-0
     Dates: start: 20030327, end: 20030329
  15. SEREVENT [Suspect]
     Indication: CHRONIC OBSTRUCTIVE PULMONARY DISEASE
     Dosage: 2 DF, QD
     Dates: start: 20030327, end: 20030329
  16. EUNERPAN [Suspect]
     Indication: SLEEP DISORDER
     Dates: start: 20030327, end: 20030330
  17. MARCUMAR [Suspect]
     Indication: THROMBOSIS PROPHYLAXIS
     Dates: start: 20030314, end: 20030406
  18. DECORTIN-H [Suspect]
     Indication: DRUG ERUPTION
     Dates: start: 20030320, end: 20030411
  19. DECORTIN-H [Suspect]
     Indication: DERMATITIS
  20. DECORTIN-H [Suspect]
     Indication: RASH
  21. NOVODIGAL [Suspect]
     Indication: SUPRAVENTRICULAR TACHYCARDIA
     Dosage: 0.2 MG, QD
     Dates: start: 20030314, end: 20030416
  22. NOVODIGAL [Suspect]
     Indication: TACHYCARDIA PAROXYSMAL
  23. PLAVIX [Suspect]
     Indication: THROMBOSIS PROPHYLAXIS
     Dates: start: 20030228, end: 20030101
  24. DYTIDE [Suspect]
     Indication: ESSENTIAL HYPERTENSION
     Dosage: 1 DF, BID
     Dates: start: 20030314, end: 20030101
  25. TELFAST/SCH/ [Suspect]
     Indication: DRUG ERUPTION
     Dosage: 1 DF, QD
     Dates: start: 20030409, end: 20030410
  26. TELFAST/SCH/ [Suspect]
     Indication: DERMATITIS
  27. TELFAST/SCH/ [Suspect]
     Indication: RASH
  28. INNOHEP/GFR/ [Suspect]
     Indication: THROMBOSIS PROPHYLAXIS
     Dosage: 0.4 ML, UNK
     Route: 058
     Dates: start: 20030409, end: 20030416
  29. REPELTIN FORTE [Suspect]
     Indication: PRURITUS
     Dosage: 1 DF, QD
     Dates: start: 20030410, end: 20030416
  30. CORNEREGEL [Suspect]
     Indication: CONJUNCTIVITIS
     Dosage: UNK, TID
     Dates: start: 20030412, end: 20030416
  31. BERODUAL [Suspect]
     Indication: CHRONIC OBSTRUCTIVE PULMONARY DISEASE
     Dosage: 2 DF, QD
     Dates: start: 20030412, end: 20030416
  32. ERGENYL ^LABAZ^ [Suspect]
     Indication: EPILEPSY
     Dosage: 1 DF, BID
  33. FRISIUM [Suspect]
     Indication: EPILEPSY
     Dates: start: 20030416, end: 20030101

REACTIONS (11)
  - BLISTER [None]
  - ERYTHEMA [None]
  - GENITAL EROSION [None]
  - LIP EROSION [None]
  - NIKOLSKY'S SIGN [None]
  - ORAL MUCOSA EROSION [None]
  - PAIN OF SKIN [None]
  - PRURITUS [None]
  - RASH PAPULAR [None]
  - STEVENS-JOHNSON SYNDROME [None]
  - TOXIC EPIDERMAL NECROLYSIS [None]
